FAERS Safety Report 13443841 (Version 1)
Quarter: 2017Q2

REPORT INFORMATION
  Report Type: Spontaneous
  Country: US (occurrence: US)
  Receive Date: 20170414
  Receipt Date: 20170414
  Transmission Date: 20170830
  Serious: Yes (Other)
  Sender: FDA-Public Use
  Company Number: US-JNJFOC-20170406018

PATIENT
  Age: 17 Month
  Sex: Female
  Weight: 11.3 kg

DRUGS (1)
  1. VISINE [Suspect]
     Active Substance: TETRAHYDROZOLINE HYDROCHLORIDE
     Indication: ACCIDENTAL EXPOSURE TO PRODUCT
     Dosage: 4 TO 5 ML (APPROXIMATELY ONE THIRD OF BOTTLE CONTENTS)
     Route: 048

REACTIONS (7)
  - Bradycardia [Recovered/Resolved]
  - Hypotension [Recovered/Resolved]
  - Somnolence [Recovered/Resolved]
  - Accidental exposure to product [Recovered/Resolved]
  - Lethargy [Recovered/Resolved]
  - Accidental overdose [Recovered/Resolved]
  - Failure of child resistant mechanism for pharmaceutical product [Unknown]
